FAERS Safety Report 8839568 (Version 2)
Quarter: 2013Q1

REPORT INFORMATION
  Report Type: Spontaneous
  Country: GB (occurrence: GB)
  Receive Date: 20121015
  Receipt Date: 20130108
  Transmission Date: 20140127
  Serious: Yes (Hospitalization)
  Sender: FDA-Public Use
  Company Number: GB-JNJFOC-20121006783

PATIENT
  Age: 2 None
  Sex: Female
  Weight: 15.7 kg

DRUGS (1)
  1. CALPOL INFANT SUSPENSION [Suspect]
     Indication: ACCIDENTAL EXPOSURE TO PRODUCT
     Dosage: WHOLE BOTTLE OF 120MG/5ML SUSPENSION (STRAWBERRY FLAVOUR)
     Route: 048
     Dates: start: 20121007

REACTIONS (4)
  - Hepatic failure [Unknown]
  - Accidental exposure to product by child [Unknown]
  - Accidental overdose [Unknown]
  - Failure of child resistant mechanism for pharmaceutical product [Unknown]
